FAERS Safety Report 9068124 (Version 1)
Quarter: 2013Q1

REPORT INFORMATION
  Report Type: Spontaneous
  Country: US (occurrence: US)
  Receive Date: 20130215
  Receipt Date: 20130215
  Transmission Date: 20140127
  Serious: No
  Sender: FDA-Public Use
  Company Number: US-009507513-1302USA006172

PATIENT
  Age: 65 None
  Sex: Male

DRUGS (1)
  1. JANUMET [Suspect]
     Dosage: 50/1000 MG STRENGTH BID
     Route: 048

REACTIONS (1)
  - Diarrhoea [Recovered/Resolved with Sequelae]
